FAERS Safety Report 8927844 (Version 1)
Quarter: 2012Q4

REPORT INFORMATION
  Report Type: 
  Country: US (occurrence: US)
  Receive Date: 20121127
  Receipt Date: 20121127
  Transmission Date: 20130627
  Serious: No
  Sender: FDA-Public Use
  Company Number: US-MYLANLABS-2012S1018450

PATIENT
  Age: 6 Year
  Sex: Male
  Weight: 35.38 kg

DRUGS (14)
  1. MONTELUKAST SODIUM [Suspect]
     Indication: MULTIPLE ALLERGIES
     Route: 048
     Dates: start: 201208
  2. MONTELUKAST SODIUM [Suspect]
     Indication: ASTHMA
     Route: 048
     Dates: start: 201208
  3. EPIPEN JR [Concomitant]
  4. ALBUTEROL INHALER [Concomitant]
     Route: 055
  5. ALBUTEROL SULFATE INHALATION SOLUTION [Concomitant]
     Dosage: qid
     Route: 055
  6. PSEUDOEPHEDRINE [Concomitant]
     Dosage: 30MG/5ML PRN
  7. PREVACID [Concomitant]
  8. NASONEX [Concomitant]
     Route: 045
  9. IPRATROPIUM BROMIDE INHALATION SOLUTION 0.02% [Concomitant]
     Dosage: Q6HR TO Q8HR
     Route: 055
  10. FLOVENT [Concomitant]
     Dosage: 2 puffs
     Route: 055
  11. BUDESONIDE [Concomitant]
  12. PATADAY [Concomitant]
  13. XYZAL [Concomitant]
  14. OMEPRAZOLE [Concomitant]

REACTIONS (2)
  - Urticaria [Recovered/Resolved]
  - Pruritus [Recovered/Resolved]
